FAERS Safety Report 7775293-3 (Version None)
Quarter: 2011Q3

REPORT INFORMATION
  Report Type: 
  Country: None (occurrence: None)
  Receive Date: 20110923
  Receipt Date: 20110913
  Transmission Date: 20111222
  Serious: Yes (Other)
  Sender: FDA-Public Use
  Company Number: NL-JNJFOC-20110905020

PATIENT
  Age: 49 Year
  Sex: Male

DRUGS (8)
  1. OXAZEPAM [Concomitant]
     Route: 065
  2. SIMVASTATIN [Concomitant]
     Route: 065
  3. CYANOCOBALAMIN [Concomitant]
     Route: 065
  4. RISPERDAL [Suspect]
     Indication: SCHIZOPHRENIA, PARANOID TYPE
     Route: 065
  5. CLOZAPINE [Interacting]
     Indication: SCHIZOPHRENIA, PARANOID TYPE
     Route: 065
  6. HALOPERIDOL [Concomitant]
     Route: 065
  7. TEMAZEPAM [Concomitant]
     Route: 065
  8. FOLIUMZUUR [Concomitant]
     Route: 065

REACTIONS (8)
  - RENAL FAILURE [None]
  - EXTRAPYRAMIDAL DISORDER [None]
  - HYPERTENSION [None]
  - PERIORBITAL OEDEMA [None]
  - LEFT VENTRICULAR HYPERTROPHY [None]
  - EYELID OEDEMA [None]
  - DRUG INTERACTION [None]
  - TACHYCARDIA [None]
